FAERS Safety Report 7488314-2 (Version None)
Quarter: 2011Q2

REPORT INFORMATION
  Report Type: 
  Country: None (occurrence: None)
  Receive Date: 20110518
  Receipt Date: 20110512
  Transmission Date: 20111010
  Serious: Yes (Hospitalization)
  Sender: FDA-Public Use
  Company Number: US-GILEAD-2011-0039185

PATIENT
  Sex: Female

DRUGS (4)
  1. EPOPROSTENOL SODIUM [Concomitant]
  2. LETAIRIS [Suspect]
     Indication: PULMONARY HYPERTENSION
     Route: 048
     Dates: start: 20100409
  3. LETAIRIS [Suspect]
     Indication: SCLERODERMA
  4. REMODULIN [Concomitant]

REACTIONS (1)
  - DIARRHOEA [None]
